FAERS Safety Report 9187278 (Version 2)
Quarter: 2013Q2

REPORT INFORMATION
  Report Type: Spontaneous
  Country: US (occurrence: US)
  Receive Date: 20130325
  Receipt Date: 20130604
  Transmission Date: 20140414
  Serious: Yes (Other)
  Sender: FDA-Public Use
  Company Number: US-SANOFI-AVENTIS-2013SA029229

PATIENT
  Age: 52 Year
  Sex: Female
  Weight: 66.67 kg

DRUGS (6)
  1. LANTUS SOLOSTAR [Suspect]
     Indication: TYPE 1 DIABETES MELLITUS
     Dosage: 14 UNITS AM AND 13 UNITS PM
     Route: 051
     Dates: start: 20050701, end: 20130319
  2. LANTUS SOLOSTAR [Suspect]
     Indication: TYPE 1 DIABETES MELLITUS
     Route: 051
     Dates: start: 20130321
  3. SOLOSTAR [Suspect]
     Indication: TYPE 1 DIABETES MELLITUS
     Dates: start: 20050701
  4. HUMALOG [Concomitant]
     Dosage: SLIDING SCALE
  5. DESOGEN ^ORGANON^ [Concomitant]
     Indication: CONTRACEPTION
     Dosage: 1 PILLS
  6. SYNTHROID [Concomitant]
     Indication: THYROID DISORDER
     Dosage: 1 PILL

REACTIONS (3)
  - Hypoglycaemia [Recovered/Resolved]
  - Blood glucose decreased [Recovered/Resolved]
  - Blood glucose increased [Unknown]
